FAERS Safety Report 20996585 (Version 2)
Quarter: 2022Q3

REPORT INFORMATION
  Report Type: Spontaneous
  Country: EG (occurrence: EG)
  Receive Date: 20220623
  Receipt Date: 20220705
  Transmission Date: 20221027
  Serious: Yes (Other)
  Sender: FDA-Public Use
  Company Number: EG-NOVOPROD-928899

PATIENT
  Age: 31 Year
  Sex: Female
  Weight: 97 kg

DRUGS (3)
  1. JUSPRIN [Concomitant]
     Indication: Anticoagulant therapy
     Dosage: 2 TAB/DAY ~FROM 6 YEARS AND STOPPED AFTER 8 MONTHS OF USAGE
     Route: 048
  2. INSULIN HUMAN [Suspect]
     Active Substance: INSULIN HUMAN
     Indication: Diabetes mellitus
     Dosage: 105 IU, QD (55 U MORNING, 50 U NIGHT)
     Route: 058
  3. INSULIN HUMAN [Suspect]
     Active Substance: INSULIN HUMAN
     Indication: Diabetes mellitus
     Dosage: 105 IU, QD (55 U MORNING / 50 U NIGHT)

REACTIONS (4)
  - Stillbirth [Unknown]
  - Hyperglycaemia [Unknown]
  - Mental disorder [Unknown]
  - Maternal exposure during pregnancy [Recovered/Resolved]
